FAERS Safety Report 10180638 (Version 1)
Quarter: 2014Q2

REPORT INFORMATION
  Report Type: Spontaneous
  Country: US (occurrence: US)
  Receive Date: 20140519
  Receipt Date: 20140519
  Transmission Date: 20141212
  Serious: No
  Sender: FDA-Public Use
  Company Number: US-AMGEN INC.-USASP2014019911

PATIENT
  Age: 83 Year
  Sex: Female

DRUGS (6)
  1. PROLIA [Suspect]
     Indication: OSTEOPOROSIS POSTMENOPAUSAL
     Route: 065
  2. WARFARIN [Concomitant]
  3. BABY ASPIRIN [Concomitant]
     Dosage: 81 MG, UNK
  4. VITAMIN B12                        /00056201/ [Concomitant]
  5. VITAMIN C                          /00008001/ [Concomitant]
  6. CALCIUM [Concomitant]

REACTIONS (6)
  - Back pain [Not Recovered/Not Resolved]
  - Arthralgia [Not Recovered/Not Resolved]
  - Groin pain [Not Recovered/Not Resolved]
  - Pain [Not Recovered/Not Resolved]
  - Gait disturbance [Not Recovered/Not Resolved]
  - Pain in extremity [Not Recovered/Not Resolved]
